FAERS Safety Report 5485362-9 (Version None)
Quarter: 2007Q4

REPORT INFORMATION
  Report Type: 
  Country: None (occurrence: None)
  Receive Date: 20071015
  Receipt Date: 20071008
  Transmission Date: 20080405
  Serious: Yes (Death, Other)
  Sender: FDA-Public Use
  Company Number: SI-BRISTOL-MYERS SQUIBB COMPANY-13934021

PATIENT
  Age: 44 Year
  Sex: Male

DRUGS (11)
  1. SPRYCEL [Suspect]
     Indication: CHRONIC MYELOID LEUKAEMIA
     Dosage: THERAPY DATES 	 11.05.2007 TO 26.05.2007=70MG BID  29.06.2007 TO 11.08.2007=50MG BID
     Route: 048
     Dates: start: 20070511, end: 20070811
  2. NEUPOGEN [Concomitant]
  3. CONTROLOC [Concomitant]
  4. VALTREX [Concomitant]
  5. VOLTAREN [Concomitant]
  6. ALDACTONE [Concomitant]
  7. ALLOPURINOL [Concomitant]
  8. PRIMOTREN [Concomitant]
     Dosage: DOSAGE FORM =1 TABLET CONTAINING SULFAMETOXAZOLE 80MG+TRIMETOPRIN 400MG
  9. NETROMYCIN [Concomitant]
  10. VANCOMYCIN [Concomitant]
  11. DIFLAZON [Concomitant]

REACTIONS (3)
  - MULTI-ORGAN FAILURE [None]
  - PANCYTOPENIA [None]
  - SEPSIS [None]
